FAERS Safety Report 21307688 (Version 10)
Quarter: 2023Q2

REPORT INFORMATION
  Report Type: Report from Study
  Country: US (occurrence: US)
  Receive Date: 20220908
  Receipt Date: 20230626
  Transmission Date: 20230722
  Serious: No
  Sender: FDA-Public Use
  Company Number: US-NOVARTISTESTPH-NVSC2022US202392

PATIENT
  Sex: Female

DRUGS (1)
  1. COSENTYX [Suspect]
     Active Substance: SECUKINUMAB
     Indication: Psoriasis
     Dosage: 75 MG, QW, (ONCE WEEKLY FOR 5 WEEKS THEN ONCE EVERY 4 WEEKS)
     Route: 058

REACTIONS (6)
  - Skin depigmentation [Unknown]
  - Decreased immune responsiveness [Unknown]
  - Scarlet fever [Recovered/Resolved]
  - Rash erythematous [Unknown]
  - Skin exfoliation [Unknown]
  - Middle insomnia [Unknown]
